FAERS Safety Report 6828137-8 (Version None)
Quarter: 2010Q3

REPORT INFORMATION
  Report Type: 
  Country: None (occurrence: None)
  Receive Date: 20100709
  Receipt Date: 20070130
  Transmission Date: 20110219
  Serious: No
  Sender: FDA-Public Use
  Company Number: US-PFIZER INC-2007009489

PATIENT
  Sex: Male
  Weight: 83.91 kg

DRUGS (12)
  1. CHANTIX [Suspect]
     Indication: SMOKING CESSATION THERAPY
     Dates: start: 20070101
  2. COZAAR [Concomitant]
     Indication: BLOOD PRESSURE ABNORMAL
  3. ZETIA [Concomitant]
     Indication: BLOOD CHOLESTEROL ABNORMAL
  4. PLAVIX [Concomitant]
  5. TRICOR [Concomitant]
     Indication: BLOOD CHOLESTEROL ABNORMAL
  6. GLYBURIDE [Concomitant]
     Indication: DIABETES MELLITUS
  7. ALLOPURINOL [Concomitant]
     Indication: GOUT
  8. OMEPRAZOLE [Concomitant]
     Indication: GASTRIC DISORDER
  9. OXYCODONE HCL [Concomitant]
     Indication: OSTEOARTHRITIS
  10. IBUPROFEN [Concomitant]
  11. CYCLOBENZAPRINE [Concomitant]
     Indication: OSTEOARTHRITIS
  12. LORAZEPAM [Concomitant]
     Indication: SLEEP DISORDER

REACTIONS (1)
  - SLEEP DISORDER [None]
